FAERS Safety Report 13014855 (Version 2)
Quarter: 2016Q4

REPORT INFORMATION
  Report Type: Spontaneous
  Country: JP (occurrence: JP)
  Receive Date: 20161209
  Receipt Date: 20161230
  Transmission Date: 20170207
  Serious: Yes (Death)
  Sender: FDA-Public Use
  Company Number: JP-B.I. PHARMACEUTICALS,INC./RIDGEFIELD-2016-NB-001284

PATIENT
  Age: 67 Year
  Sex: Male

DRUGS (2)
  1. ADSORBIN [Concomitant]
     Active Substance: ALUMINUM SILICATE
     Indication: PROPHYLAXIS AGAINST DIARRHOEA
     Route: 048
  2. GILOTRIF [Suspect]
     Active Substance: AFATINIB
     Indication: LUNG ADENOCARCINOMA STAGE IV
     Route: 048

REACTIONS (2)
  - Diarrhoea [Unknown]
  - Malignant neoplasm progression [Fatal]
